FAERS Safety Report 5179134-2 (Version None)
Quarter: 2006Q4

REPORT INFORMATION
  Report Type: 
  Country: None (occurrence: None)
  Receive Date: 20061219
  Receipt Date: 20061004
  Transmission Date: 20070319
  Serious: Yes (Hospitalization)
  Sender: FDA-Public Use
  Company Number: US-KINGPHARMUSA00001-K200601286

PATIENT
  Age: 92 Year
  Sex: Female

DRUGS (9)
  1. FLORINEF [Suspect]
     Indication: HYPOTENSION
     Dosage: .1 MG, BID
     Route: 048
     Dates: start: 20051005, end: 20061003
  2. FLORINEF [Suspect]
     Dosage: .1 MG, TID
     Dates: start: 20061005
  3. NAMENDA [Suspect]
     Indication: DEMENTIA ALZHEIMER'S TYPE
     Dosage: 10 MG, BID
     Route: 048
     Dates: start: 20040201
  4. NAMENDA [Suspect]
     Dosage: 5 MG, QD
  5. NAMENDA [Suspect]
     Dates: start: 20060918, end: 20061004
  6. NAMENDA [Suspect]
     Dosage: 10 MG, QD
     Dates: start: 20061005
  7. REMINYL /00382001/ [Concomitant]
     Dates: start: 20040101
  8. LIPITOR [Concomitant]
     Dates: start: 20040101
  9. BACTRIM [Concomitant]
     Dates: start: 20060601

REACTIONS (6)
  - DEHYDRATION [None]
  - FATIGUE [None]
  - GASTRIC ULCER [None]
  - HELICOBACTER INFECTION [None]
  - HYPOKALAEMIA [None]
  - SOMNOLENCE [None]
